FAERS Safety Report 5230346-9 (Version None)
Quarter: 2007Q1

REPORT INFORMATION
  Report Type: 
  Country: None (occurrence: None)
  Receive Date: 20070206
  Receipt Date: 20070201
  Transmission Date: 20070707
  Serious: Yes (Hospitalization, Other)
  Sender: FDA-Public Use
  Company Number: US-JNJFOC-20061000248

PATIENT
  Sex: Female
  Weight: 72.58 kg

DRUGS (1)
  1. ORTHO EVRA [Suspect]
     Indication: CONTRACEPTION
     Route: 062
     Dates: start: 20030101, end: 20050101

REACTIONS (2)
  - CARDIAC ENZYMES INCREASED [None]
  - CHEST PAIN [None]
